FAERS Safety Report 5856296-2 (Version None)
Quarter: 2008Q3

REPORT INFORMATION
  Report Type: 
  Country: None (occurrence: None)
  Receive Date: 20080825
  Receipt Date: 20080818
  Transmission Date: 20090109
  Serious: Yes (Hospitalization, Disabling)
  Sender: FDA-Public Use
  Company Number: D0058097A

PATIENT
  Age: 66 Year
  Sex: Female
  Weight: 57 kg

DRUGS (7)
  1. VIANI [Suspect]
     Indication: ASTHMA
     Dosage: 1PUFF TWICE PER DAY
     Route: 055
     Dates: start: 20030101, end: 20080101
  2. THEOPHYLLINE [Concomitant]
     Indication: ASTHMA
     Route: 048
  3. EUTHYROX [Concomitant]
     Indication: ASTHMA
     Route: 048
  4. MOXIFLOXACIN HCL [Concomitant]
     Indication: ASTHMA
     Route: 048
  5. CEFUROXIME [Concomitant]
     Indication: ASTHMA
     Route: 048
  6. AZITROMYCIN [Concomitant]
     Indication: ASTHMA
     Route: 048
  7. CIPROFLOXACIN [Concomitant]
     Indication: ANTIBIOTIC THERAPY
     Route: 065

REACTIONS (9)
  - ALVEOLITIS ALLERGIC [None]
  - BIOPSY LUNG [None]
  - DYSPNOEA [None]
  - INTERSTITIAL LUNG DISEASE [None]
  - RESPIRATORY ALKALOSIS [None]
  - SJOGREN'S SYNDROME [None]
  - SKIN INFLAMMATION [None]
  - THORACOTOMY [None]
  - WEIGHT DECREASED [None]
